FAERS Safety Report 14700446 (Version 1)
Quarter: 2018Q1

REPORT INFORMATION
  Report Type: Spontaneous
  Country: CA (occurrence: CA)
  Receive Date: 20180330
  Receipt Date: 20180330
  Transmission Date: 20180509
  Serious: Yes (Other)
  Sender: FDA-Public Use
  Company Number: CA-ASTRAZENECA-2018SE38168

PATIENT
  Age: 61 Year
  Sex: Female

DRUGS (11)
  1. EXEMESTANE. [Suspect]
     Active Substance: EXEMESTANE
     Route: 065
     Dates: start: 2014
  2. TAXOL [Concomitant]
     Active Substance: PACLITAXEL
     Dates: start: 2012
  3. FASLODEX [Suspect]
     Active Substance: FULVESTRANT
     Route: 030
     Dates: start: 2013, end: 2014
  4. DOXORUBICIN [Concomitant]
     Active Substance: DOXORUBICIN
  5. CYCLOPHOSPHAMIDE. [Concomitant]
     Active Substance: CYCLOPHOSPHAMIDE
     Dates: start: 2004
  6. EVEROLIMUS. [Concomitant]
     Active Substance: EVEROLIMUS
     Dates: start: 2014, end: 2016
  7. ERIBULIN [Concomitant]
     Active Substance: ERIBULIN
     Dates: start: 2017, end: 2018
  8. IBRANCE [Concomitant]
     Active Substance: PALBOCICLIB
     Indication: BREAST CANCER METASTATIC
     Dates: start: 20180313
  9. TAMOXIFEN CITRATE. [Suspect]
     Active Substance: TAMOXIFEN CITRATE
     Route: 048
     Dates: start: 2005, end: 2011
  10. CAPECITABINE. [Concomitant]
     Active Substance: CAPECITABINE
     Dates: start: 2016, end: 2017
  11. LETROZOLE. [Concomitant]
     Active Substance: LETROZOLE
     Dates: start: 2012, end: 2013

REACTIONS (1)
  - Malignant neoplasm progression [Unknown]
